FAERS Safety Report 21946237 (Version 1)
Quarter: 2023Q1

REPORT INFORMATION
  Report Type: Spontaneous
  Country: BR (occurrence: BR)
  Receive Date: 20230202
  Receipt Date: 20230202
  Transmission Date: 20230417
  Serious: Yes (Other)
  Sender: FDA-Public Use
  Company Number: BR-BAXTER-2023BAX011707

PATIENT

DRUGS (9)
  1. CYCLOPHOSPHAMIDE [Suspect]
     Active Substance: CYCLOPHOSPHAMIDE
     Indication: Plasmacytoma
     Dosage: 500 MG/M2, WEEKLY, AS A PART OF CTD REGIMEN, 4 CYCLES FROM APR2016 TO SEP2016
     Route: 048
  2. THALIDOMIDE [Suspect]
     Active Substance: THALIDOMIDE
     Indication: Plasmacytoma
     Dosage: 200 MG/DAY, 28/28 DAYS, AS A PART OF CTD REGIMEN, 4 CYCLES FROM APR2016 TO SEP2016
     Route: 065
  3. THALIDOMIDE [Suspect]
     Active Substance: THALIDOMIDE
     Dosage: 100 MG/DAY, 28/28 DAYS, AS A PART OF VTD REGIMEN, 6 CYCLES
     Route: 065
     Dates: start: 20200603, end: 20201118
  4. THALIDOMIDE [Suspect]
     Active Substance: THALIDOMIDE
     Dosage: AS A PART OF VTD REGIMEN, 3 CYCLES FROM MAR TO JUN2022
     Route: 065
  5. THALIDOMIDE [Suspect]
     Active Substance: THALIDOMIDE
     Dosage: AS A PART OF DARA VTD REGIMEN, 4 CYCLES FROM JUN TO OCT2022
     Route: 065
  6. DEXAMETHASONE [Suspect]
     Active Substance: DEXAMETHASONE
     Indication: Plasmacytoma
     Dosage: 40 MG, WEEKLY, AS A PART OF CTD REGIMEN, 4 CYCLES FROM APR2016 TO SEP2016
     Route: 048
  7. DEXAMETHASONE [Suspect]
     Active Substance: DEXAMETHASONE
     Dosage: 40 MG, WEEKLY, AS A PART OF VTD REGIMEN, 6 CYCLES
     Route: 048
     Dates: start: 20200603, end: 20201118
  8. DEXAMETHASONE [Suspect]
     Active Substance: DEXAMETHASONE
     Dosage: AS A PART OF VTD REGIMEN, 3 CYCLES FROM MAR TO JUN2022
     Route: 065
  9. DEXAMETHASONE [Suspect]
     Active Substance: DEXAMETHASONE
     Dosage: AS A PART OF DARA VTD REGIMEN, 4 CYCLES FROM JUN TO OCT2022
     Route: 065

REACTIONS (2)
  - Plasmacytoma [Unknown]
  - Disease recurrence [Unknown]
